FAERS Safety Report 6080191-X (Version None)
Quarter: 2009Q1

REPORT INFORMATION
  Report Type: 
  Country: None (occurrence: None)
  Receive Date: 20090217
  Receipt Date: 20090210
  Transmission Date: 20090719
  Serious: Yes (Other)
  Sender: FDA-Public Use
  Company Number: US-ELI_LILLY_AND_COMPANY-US200901005207

PATIENT
  Sex: Female

DRUGS (13)
  1. HUMULIN R [Suspect]
  2. HUMULIN R [Suspect]
  3. HUMULIN N [Suspect]
  4. ZOLOFT [Concomitant]
  5. RISPERDAL [Concomitant]
  6. ATIVAN [Concomitant]
  7. NEXIUM [Concomitant]
  8. LASIX [Concomitant]
  9. ATENOLOL [Concomitant]
  10. DARVOCET [Concomitant]
  11. BACTROBAN /00753902/ [Concomitant]
  12. LOPROX [Concomitant]
  13. MECLIZINE [Concomitant]

REACTIONS (2)
  - DEMENTIA ALZHEIMER'S TYPE [None]
  - RENAL FAILURE CHRONIC [None]
